FAERS Safety Report 25494708 (Version 1)
Quarter: 2025Q2

REPORT INFORMATION
  Report Type: Report from Study
  Country: US (occurrence: US)
  Receive Date: 20250630
  Receipt Date: 20250630
  Transmission Date: 20250716
  Serious: No
  Sender: AGIOS PHARMACEUTICALS
  Company Number: US-AGIOS-2506US04322

PATIENT
  Sex: Male

DRUGS (1)
  1. MITAPIVAT [Suspect]
     Active Substance: MITAPIVAT
     Indication: Sickle cell disease
     Route: 065
     Dates: start: 20250603

REACTIONS (2)
  - Back pain [Unknown]
  - Off label use [Unknown]
